FAERS Safety Report 19034208 (Version 1)
Quarter: 2021Q1

REPORT INFORMATION
  Report Type: Report from Study
  Country: EG (occurrence: EG)
  Receive Date: 20210319
  Receipt Date: 20210319
  Transmission Date: 20210420
  Serious: Yes (Death, Other)
  Sender: FDA-Public Use
  Company Number: NVSC2021EG063631

PATIENT
  Age: 78 Year
  Sex: Female

DRUGS (3)
  1. GLIMET [Concomitant]
     Indication: PRODUCT USED FOR UNKNOWN INDICATION
     Dosage: 1 DF, QD
     Route: 065
  2. ENTRESTO [Suspect]
     Active Substance: SACUBITRIL\VALSARTAN
     Indication: CARDIAC FAILURE
     Dosage: 100 MG, BID
     Route: 048
     Dates: start: 2015
  3. ENTRESTO [Suspect]
     Active Substance: SACUBITRIL\VALSARTAN
     Dosage: UNK, BID (100MG 1 TABLET IN THE MORNING AND 50MG 1 TABLET AT NIGHT)
     Route: 048

REACTIONS (7)
  - Urticaria [Recovering/Resolving]
  - Oxygen saturation decreased [Fatal]
  - Depressed mood [Recovering/Resolving]
  - Incorrect dose administered [Unknown]
  - Atrial flutter [Recovering/Resolving]
  - COVID-19 [Fatal]
  - Dyspnoea [Recovering/Resolving]

NARRATIVE: CASE EVENT DATE: 2017
